FAERS Safety Report 24528101 (Version 1)
Quarter: 2024Q4

REPORT INFORMATION
  Report Type: Spontaneous
  Country: PT (occurrence: PT)
  Receive Date: 20241021
  Receipt Date: 20241021
  Transmission Date: 20250115
  Serious: Yes (Other)
  Sender: CELLTRION
  Company Number: PT-FreseniusKabi-FK202406482

PATIENT

DRUGS (10)
  1. RITUXIMAB [Suspect]
     Active Substance: RITUXIMAB
     Indication: Gene mutation
     Dosage: R-ESHAP REGIMEN 3 CYCLES
     Dates: start: 2019
  2. RITUXIMAB [Suspect]
     Active Substance: RITUXIMAB
     Indication: Diffuse large B-cell lymphoma
  3. CYTARABINE [Suspect]
     Active Substance: CYTARABINE
     Indication: Gene mutation
     Dosage: R-ESHAP REGIMEN 3 CYCLES FOLLOWED BY A REINFORCED DOSE OF CYTARABINE
     Dates: start: 2019
  4. CYTARABINE [Suspect]
     Active Substance: CYTARABINE
     Indication: Diffuse large B-cell lymphoma
  5. ETOPOSIDE [Suspect]
     Active Substance: ETOPOSIDE
     Indication: Gene mutation
     Dosage: R-ESHAP REGIMEN 3 CYCLES
     Dates: start: 2019
  6. ETOPOSIDE [Suspect]
     Active Substance: ETOPOSIDE
     Indication: Diffuse large B-cell lymphoma
  7. CISPLATIN [Suspect]
     Active Substance: CISPLATIN
     Indication: Gene mutation
     Dosage: R-ESHAP REGIMEN 3 CYCLES
     Dates: start: 2019
  8. CISPLATIN [Suspect]
     Active Substance: CISPLATIN
     Indication: Diffuse large B-cell lymphoma
  9. METHYLPREDNISOLONE [Suspect]
     Active Substance: METHYLPREDNISOLONE
     Indication: Gene mutation
     Dosage: R-ESHAP REGIMEN 3 CYCLES
     Dates: start: 2019
  10. METHYLPREDNISOLONE [Suspect]
     Active Substance: METHYLPREDNISOLONE
     Indication: Diffuse large B-cell lymphoma

REACTIONS (4)
  - Acute graft versus host disease [Recovered/Resolved]
  - Chronic graft versus host disease [Recovered/Resolved]
  - Cytomegalovirus infection reactivation [Recovered/Resolved]
  - Intentional product use issue [Unknown]
